FAERS Safety Report 17200692 (Version 1)
Quarter: 2019Q4

REPORT INFORMATION
  Report Type: Report from Study
  Country: KR (occurrence: KR)
  Receive Date: 20191226
  Receipt Date: 20191226
  Transmission Date: 20200122
  Serious: Yes (Hospitalization)
  Sender: FDA-Public Use
  Company Number: KR-VIIV HEALTHCARE LIMITED-KR2019GSK229567

PATIENT
  Age: 29 Year
  Sex: Male
  Weight: 72.9 kg

DRUGS (13)
  1. YAMATETAN INJECTION [Concomitant]
     Indication: PREOPERATIVE CARE
     Dosage: 1 G, QD
     Route: 042
     Dates: start: 20181008, end: 20181008
  2. ANAPROX TABLET [Concomitant]
     Indication: POSTOPERATIVE ANALGESIA
     Dosage: 2 DF, BID
     Route: 048
     Dates: start: 20181009, end: 20181017
  3. BACTEROCIN OINTMENT [Concomitant]
     Indication: WOUND TREATMENT
     Dosage: UNK, BID
     Route: 050
     Dates: start: 20181009, end: 201811
  4. ANAPROX TABLET [Concomitant]
     Dosage: 2 DF, BID
     Route: 048
     Dates: start: 20181205, end: 20181211
  5. YAMATETAN INJECTION [Concomitant]
     Dosage: 1 G, QD
     Route: 042
     Dates: start: 20181204, end: 20181204
  6. ABACAVIRSULPHATE+DOLUTEGRAVIR+LAMIVUDINE [Suspect]
     Active Substance: ABACAVIR SULFATE\DOLUTEGRAVIR SODIUM\LAMIVUDINE
     Indication: HIV INFECTION
     Dosage: 1 DF, QD
     Route: 048
     Dates: start: 20180907
  7. ANAPROX TABLET [Concomitant]
     Dosage: 2 DF, BID
     Route: 048
     Dates: start: 20181224, end: 20190106
  8. PREVENAR 13 INJECTION [Concomitant]
     Indication: PROPHYLAXIS
     Dosage: 0.5 ML, QD
     Route: 030
     Dates: start: 20181006, end: 20181006
  9. SYLCON TABLET [Concomitant]
     Indication: CONSTIPATION PROPHYLAXIS
     Dosage: 6 DF, TID
     Route: 048
     Dates: start: 20181009, end: 20181116
  10. LEVAN H OINTMENT [Concomitant]
     Dosage: UNK
     Route: 050
     Dates: start: 20181009, end: 201811
  11. FLUARIX TETRA PREFILLED SYRINGE [Concomitant]
     Indication: ANTIVIRAL PROPHYLAXIS
     Dosage: 0.5 ML, QD
     Route: 030
     Dates: start: 20181006, end: 20181006
  12. STILLEN [Concomitant]
     Indication: GASTROINTESTINAL DISORDER PROPHYLAXIS
     Dosage: 2 DF, BID
     Route: 048
     Dates: start: 20181009, end: 20181017
  13. KEROLA INJECTION [Concomitant]
     Indication: POSTOPERATIVE ANALGESIA
     Dosage: 30 MG, QD
     Route: 042
     Dates: start: 20181009, end: 20181009

REACTIONS (1)
  - Anogenital warts [Recovered/Resolved]

NARRATIVE: CASE EVENT DATE: 20181119
